FAERS Safety Report 9675420 (Version 2)
Quarter: 2013Q4

REPORT INFORMATION
  Report Type: Spontaneous
  Country: JP (occurrence: JP)
  Receive Date: 20131107
  Receipt Date: 20131107
  Transmission Date: 20140711
  Serious: Yes (Hospitalization)
  Sender: FDA-Public Use
  Company Number: JP-ABBVIE-13X-087-1107746-00

PATIENT
  Age: 60 Year
  Sex: Male

DRUGS (4)
  1. LIPIDIL [Suspect]
     Indication: DYSLIPIDAEMIA
     Route: 048
     Dates: start: 201303, end: 20130522
  2. AROTINOLOL HYDROCHLORIDE [Concomitant]
     Indication: PRODUCT USED FOR UNKNOWN INDICATION
     Route: 048
     Dates: start: 2008, end: 20130602
  3. OLMETEC [Concomitant]
     Indication: HYPERTENSION
     Route: 048
     Dates: start: 2008
  4. ATELEC [Concomitant]
     Indication: PRODUCT USED FOR UNKNOWN INDICATION
     Route: 048
     Dates: start: 2008, end: 20130601

REACTIONS (1)
  - Interstitial lung disease [Recovering/Resolving]
